FAERS Safety Report 6096285-9 (Version None)
Quarter: 2009Q1

REPORT INFORMATION
  Report Type: 
  Country: None (occurrence: None)
  Receive Date: 20090227
  Receipt Date: 20081201
  Transmission Date: 20090719
  Serious: No
  Sender: FDA-Public Use
  Company Number: A0754249A

PATIENT
  Age: 31 Year
  Sex: Female
  Weight: 99.1 kg

DRUGS (5)
  1. LAMICTAL [Suspect]
     Dosage: 250MG PER DAY
  2. ORAL CONTRACEPTIVE [Suspect]
  3. ABILIFY [Concomitant]
  4. RISPERIDONE [Concomitant]
  5. LOESTRIN 1.5/30 [Concomitant]

REACTIONS (2)
  - AGITATION [None]
  - DRUG INTERACTION [None]
